FAERS Safety Report 8176924-9 (Version None)
Quarter: 2012Q1

REPORT INFORMATION
  Report Type: 
  Country: None (occurrence: None)
  Receive Date: 20120301
  Receipt Date: 20120220
  Transmission Date: 20120608
  Serious: Yes (Hospitalization)
  Sender: FDA-Public Use
  Company Number: GB-JNJFOC-20120203771

PATIENT
  Sex: Male
  Weight: 103 kg

DRUGS (7)
  1. PALIPERIDONE PALMITATE [Suspect]
     Route: 030
     Dates: start: 20111006
  2. CITALOPRAM HYDROBROMIDE [Suspect]
     Indication: ANXIETY
     Route: 065
     Dates: start: 20120130
  3. PALIPERIDONE PALMITATE [Suspect]
     Indication: SCHIZOPHRENIA
     Route: 030
     Dates: start: 20120109
  4. OLANZAPINE [Suspect]
     Indication: SLEEP DISORDER
     Route: 065
     Dates: start: 20120130
  5. PALIPERIDONE PALMITATE [Suspect]
     Route: 030
     Dates: start: 20120214
  6. OLANZAPINE [Suspect]
     Route: 065
  7. CITALOPRAM HYDROBROMIDE [Suspect]
     Route: 065

REACTIONS (1)
  - PSYCHOTIC DISORDER [None]
